FAERS Safety Report 14330945 (Version 3)
Quarter: 2020Q3

REPORT INFORMATION
  Report Type: Other
  Country: IT (occurrence: IT)
  Receive Date: 20171228
  Receipt Date: 20200707
  Transmission Date: 20201102
  Serious: Yes (Hospitalization)
  Sender: FDA-Public Use
  Company Number: IT-MACLEODS PHARMACEUTICALS US LTD-MAC2017007516

PATIENT

DRUGS (5)
  1. LEVOFLOXACIN 500 MG TABLET [Suspect]
     Active Substance: LEVOFLOXACIN
     Indication: COUGH
     Dosage: 500 MG, QD
     Route: 048
     Dates: start: 20171108, end: 20171114
  2. PARACETAMOL [Concomitant]
     Active Substance: ACETAMINOPHEN
     Indication: PRODUCT USED FOR UNKNOWN INDICATION
     Dosage: UNK
     Route: 065
  3. DIHYDROCODEINE [Concomitant]
     Active Substance: DIHYDROCODEINE
     Indication: PRODUCT USED FOR UNKNOWN INDICATION
     Dosage: UNK
     Route: 065
  4. PARACODINA [Concomitant]
     Indication: PRODUCT USED FOR UNKNOWN INDICATION
     Dosage: UNK
     Route: 065
  5. LEVOFLOXACIN 500 MG TABLET [Suspect]
     Active Substance: LEVOFLOXACIN
     Indication: RESPIRATORY TRACT INFECTION

REACTIONS (5)
  - Blood creatinine increased [Unknown]
  - Pustule [Recovering/Resolving]
  - Rash maculo-papular [Recovering/Resolving]
  - Petechiae [Recovering/Resolving]
  - Erythema [Recovering/Resolving]

NARRATIVE: CASE EVENT DATE: 20171111
